FAERS Safety Report 19923684 (Version 1)
Quarter: 2021Q4

REPORT INFORMATION
  Report Type: Spontaneous
  Country: US (occurrence: US)
  Receive Date: 20211005
  Receipt Date: 20211005
  Transmission Date: 20220304
  Serious: Yes (Other)
  Sender: FDA-Public Use
  Company Number: US-SAGENT PHARMACEUTICALS-2021SAG002134

PATIENT
  Age: 14 Year
  Sex: Male

DRUGS (6)
  1. DOXORUBICIN HYDROCHLORIDE [Suspect]
     Active Substance: DOXORUBICIN HYDROCHLORIDE
     Indication: Rhabdomyosarcoma
     Dosage: 4.5 MG/M2, EVERY 2 WEEKS IN 25 ML D5 1=2 NS
     Route: 013
  2. MELPHALAN [Suspect]
     Active Substance: MELPHALAN
     Indication: Rhabdomyosarcoma
     Dosage: UNK
     Route: 013
  3. CISPLATIN [Suspect]
     Active Substance: CISPLATIN
     Indication: Rhabdomyosarcoma
     Dosage: 100 MG/M2, EVERY 2 WEEKS, IN 1 MG/ML D5 1=2 NS
     Route: 013
  4. ETOPOSIDE [Suspect]
     Active Substance: ETOPOSIDE
     Indication: Rhabdomyosarcoma
     Dosage: UNK
     Route: 048
  5. DEXAMETHASONE [Suspect]
     Active Substance: DEXAMETHASONE
     Indication: Prophylaxis
  6. ONDANSETRON [Suspect]
     Active Substance: ONDANSETRON
     Indication: Prophylaxis
     Dosage: UNK

REACTIONS (8)
  - Arterial injury [Unknown]
  - Deafness neurosensory [Unknown]
  - Tinnitus [Unknown]
  - Myelosuppression [Unknown]
  - Haematochezia [Unknown]
  - Proctitis [Unknown]
  - Headache [Unknown]
  - Oral pain [Unknown]
